FAERS Safety Report 24675078 (Version 1)
Quarter: 2024Q4

REPORT INFORMATION
  Report Type: Spontaneous
  Country: CA (occurrence: CA)
  Receive Date: 20241128
  Receipt Date: 20241128
  Transmission Date: 20250114
  Serious: Yes (Other)
  Sender: ACCORD
  Company Number: None

PATIENT
  Age: 33 Year
  Sex: Female

DRUGS (7)
  1. QUETIAPINE [Suspect]
     Active Substance: QUETIAPINE
     Indication: Insomnia
     Dosage: 1 EVERY 1 DAYS
     Route: 048
  2. ZOPICLONE [Suspect]
     Active Substance: ZOPICLONE
     Indication: Insomnia
     Dosage: AS REQUIRED
     Route: 048
  3. VALERIAN [Suspect]
     Active Substance: VALERIAN
     Indication: Insomnia
     Dosage: AS REQUIRED
  4. LAMOTRIGINE [Concomitant]
     Active Substance: LAMOTRIGINE
  5. MAGNESIUM [Concomitant]
     Active Substance: MAGNESIUM
  6. MELATONIN [Concomitant]
     Active Substance: MELATONIN
  7. QUETIAPINE [Suspect]
     Active Substance: QUETIAPINE
     Indication: Affective disorder
     Dosage: 1 EVERY 1 DAYS
     Route: 048

REACTIONS (5)
  - Chest discomfort [Unknown]
  - Dizziness [Unknown]
  - Heart rate increased [Unknown]
  - Insomnia [Unknown]
  - Sleep disorder [Unknown]
